FAERS Safety Report 13219262 (Version 2)
Quarter: 2017Q1

REPORT INFORMATION
  Report Type: Spontaneous
  Country: US (occurrence: US)
  Receive Date: 20170210
  Receipt Date: 20170323
  Transmission Date: 20170428
  Serious: No
  Sender: FDA-Public Use
  Company Number: US-ASTRAZENECA-2017SE14750

PATIENT
  Age: 23526 Day
  Sex: Male
  Weight: 104.3 kg

DRUGS (1)
  1. RHINOCORT ALLERGY [Suspect]
     Active Substance: BUDESONIDE
     Indication: ASTHMA-CHRONIC OBSTRUCTIVE PULMONARY DISEASE OVERLAP SYNDROME
     Dosage: 1 SPRAY IN EACH NOSTRIL ONCE A DAY
     Route: 045
     Dates: start: 20080215

REACTIONS (5)
  - Product closure removal difficult [Unknown]
  - Pain in extremity [Not Recovered/Not Resolved]
  - Contusion [Recovered/Resolved]
  - Product use issue [Not Recovered/Not Resolved]
  - Product package associated injury [Unknown]

NARRATIVE: CASE EVENT DATE: 20080215
